FAERS Safety Report 15472185 (Version 2)
Quarter: 2019Q1

REPORT INFORMATION
  Report Type: Spontaneous
  Country: US (occurrence: US)
  Receive Date: 20181008
  Receipt Date: 20190228
  Transmission Date: 20190417
  Serious: No
  Sender: FDA-Public Use
  Company Number: US-009507513-1810USA000577

PATIENT
  Sex: Male

DRUGS (7)
  1. STEGLATRO [Suspect]
     Active Substance: ERTUGLIFLOZIN PIDOLATE
     Dosage: UNK
     Route: 048
  2. ACTOS [Suspect]
     Active Substance: PIOGLITAZONE HYDROCHLORIDE
     Dosage: UNK
  3. TRULICITY [Suspect]
     Active Substance: DULAGLUTIDE
     Dosage: UNK
  4. LIPITOR [Suspect]
     Active Substance: ATORVASTATIN CALCIUM
     Dosage: UNK
  5. MINIPRIN [Suspect]
     Active Substance: ASPIRIN
     Dosage: UNK
  6. ASPIRIN. [Suspect]
     Active Substance: ASPIRIN
     Dosage: UNK
  7. TOUJEO [Suspect]
     Active Substance: INSULIN GLARGINE
     Dosage: 20 UNITS
     Dates: start: 2018

REACTIONS (7)
  - Palpitations [Unknown]
  - Nausea [Unknown]
  - Dizziness [Unknown]
  - Arthralgia [Unknown]
  - Feeling abnormal [Unknown]
  - Blood glucose abnormal [Unknown]
  - Thirst [Unknown]

NARRATIVE: CASE EVENT DATE: 2018
